FAERS Safety Report 8787305 (Version 1)
Quarter: 2012Q4

REPORT INFORMATION
  Report Type: 
  Country: FR (occurrence: FR)
  Receive Date: 20120914
  Receipt Date: 20120914
  Transmission Date: 20130627
  Serious: Yes (Hospitalization, Other)
  Sender: FDA-Public Use
  Company Number: FR-ABBOTT-12P-056-0977034-00

PATIENT
  Age: 51 Year
  Sex: Female

DRUGS (1)
  1. HUMIRA [Suspect]
     Indication: RHEUMATOID ARTHRITIS
     Dates: start: 200605, end: 201110

REACTIONS (6)
  - Apraxia [Unknown]
  - Paraesthesia [Unknown]
  - Dysarthria [Unknown]
  - Nuclear magnetic resonance imaging abnormal [Unknown]
  - Vasculitis [Unknown]
  - Lymphoma [Unknown]
